FAERS Safety Report 4284917-7 (Version None)
Quarter: 2004Q1

REPORT INFORMATION
  Report Type: 
  Country: None (occurrence: None)
  Receive Date: 20040202
  Receipt Date: 20040129
  Transmission Date: 20041129
  Serious: Yes (Death)
  Sender: FDA-Public Use
  Company Number: USA-2003-0007802

PATIENT
  Age: 51 Year
  Sex: Male

DRUGS (9)
  1. OXYCODONE HCL [Suspect]
  2. DIZEPAM (DIAZEPAM) [Suspect]
  3. OXAZEPAM [Suspect]
  4. METHADONE HCL [Suspect]
  5. MIRTAZAPINE [Suspect]
  6. PHENOBARBITAL TAB [Suspect]
  7. PROMETHAZINE [Suspect]
  8. TRIMETHOBENZAMIDE (TRIMETHOBENZAMIDE) [Suspect]
  9. TEMAZEPAM [Suspect]

REACTIONS (10)
  - CEREBRAL HAEMORRHAGE [None]
  - COMPLETED SUICIDE [None]
  - DRUG SCREEN POSITIVE [None]
  - GUN SHOT WOUND [None]
  - HEAD INJURY [None]
  - MOUTH INJURY [None]
  - OEDEMA [None]
  - PANCREATIC DISORDER [None]
  - PULMONARY CONGESTION [None]
  - SUBARACHNOID HAEMORRHAGE [None]
